FAERS Safety Report 20741804 (Version 3)
Quarter: 2022Q4

REPORT INFORMATION
  Report Type: Other
  Country: US (occurrence: None)
  Receive Date: 20220423
  Receipt Date: 20221226
  Transmission Date: 20230112
  Serious: Yes (Other)
  Sender: FDA-Public Use
  Company Number: US-ROCHE-2344159

PATIENT
  Age: 77 Year
  Sex: Male
  Weight: 90.800 kg

DRUGS (8)
  1. ERIVEDGE [Suspect]
     Active Substance: VISMODEGIB
     Indication: Basal cell carcinoma
     Dosage: ONGOING : YES
     Route: 048
     Dates: start: 201812
  2. ERIVEDGE [Suspect]
     Active Substance: VISMODEGIB
     Indication: Basal cell carcinoma
  3. ERIVEDGE [Suspect]
     Active Substance: VISMODEGIB
     Indication: Non-Hodgkin^s lymphoma
  4. ERIVEDGE [Suspect]
     Active Substance: VISMODEGIB
     Indication: Neoplasm malignant
  5. TAMSULOSIN [Concomitant]
     Active Substance: TAMSULOSIN
     Dosage: ONGOING : YES
  6. FINASTERIDE [Concomitant]
     Active Substance: FINASTERIDE
     Dosage: ONGOING : YES
  7. IBUPROFEN [Concomitant]
     Active Substance: IBUPROFEN
     Indication: Pain
  8. ADVIL [Concomitant]
     Active Substance: IBUPROFEN

REACTIONS (1)
  - Deafness [Unknown]
